FAERS Safety Report 11272526 (Version 1)
Quarter: 2015Q3

REPORT INFORMATION
  Report Type: Spontaneous
  Country: US (occurrence: None)
  Receive Date: 20150714
  Receipt Date: 20150714
  Transmission Date: 20151125
  Serious: Yes (Disabling)
  Sender: FDA-Public Use
  Company Number: None

PATIENT
  Age: 57 Year
  Sex: Female
  Weight: 99.79 kg

DRUGS (11)
  1. FENTANYL. [Suspect]
     Active Substance: FENTANYL
     Dosage: 75 UG 1 PATCH EVERY 3 DAYS, PATCH, SKIN (ARM)
     Dates: start: 20150701, end: 20150706
  2. ABILIFY [Concomitant]
     Active Substance: ARIPIPRAZOLE
  3. METHADONE [Concomitant]
     Active Substance: METHADONE HYDROCHLORIDE
  4. FLEXERIL [Concomitant]
     Active Substance: CYCLOBENZAPRINE HYDROCHLORIDE
  5. LEXAPRO [Concomitant]
     Active Substance: ESCITALOPRAM OXALATE
  6. OXYCODONE [Concomitant]
     Active Substance: OXYCODONE
  7. VISTARIL [Concomitant]
     Active Substance: HYDROXYZINE PAMOATE
  8. TEGRETOL [Concomitant]
     Active Substance: CARBAMAZEPINE
  9. NORCO [Concomitant]
     Active Substance: ACETAMINOPHEN\HYDROCODONE BITARTRATE
  10. ADDERALL [Concomitant]
     Active Substance: AMPHETAMINE ASPARTATE\AMPHETAMINE SULFATE\DEXTROAMPHETAMINE SACCHARATE\DEXTROAMPHETAMINE SULFATE
  11. KLONOPIN [Concomitant]
     Active Substance: CLONAZEPAM

REACTIONS (4)
  - Immobile [None]
  - Limb discomfort [None]
  - Pain [None]
  - Asthenia [None]

NARRATIVE: CASE EVENT DATE: 20150706
